FAERS Safety Report 10084248 (Version 2)
Quarter: 2014Q2

REPORT INFORMATION
  Report Type: Spontaneous
  Country: US (occurrence: None)
  Receive Date: 20140415
  Receipt Date: 20140418
  Transmission Date: 20141212
  Serious: No
  Sender: FDA-Public Use
  Company Number: 2014-US-003979

PATIENT
  Age: 19 Year
  Sex: Female
  Weight: 41 kg

DRUGS (6)
  1. XYREM [Suspect]
     Indication: CATAPLEXY
     Route: 048
     Dates: start: 201403, end: 201403
  2. XYREM [Suspect]
     Indication: NARCOLEPSY
     Route: 048
     Dates: start: 201403, end: 201403
  3. PROVIGIL (MODAFINIL) [Concomitant]
  4. GENERIC MIRAPEX (PRAMIPEXOLE) [Concomitant]
  5. SINGULAR (MONTELUKAST SODIUM) [Concomitant]
  6. ASMANEX (MOMETASONE FUROATE) [Concomitant]

REACTIONS (8)
  - Feeling of body temperature change [None]
  - Parosmia [None]
  - Paraesthesia [None]
  - Feeling cold [None]
  - Anxiety [None]
  - Fatigue [None]
  - Nausea [None]
  - Vomiting [None]
